FAERS Safety Report 8096300-7 (Version None)
Quarter: 2012Q1

REPORT INFORMATION
  Report Type: 
  Country: None (occurrence: None)
  Receive Date: 20120129
  Receipt Date: 20111230
  Transmission Date: 20120608
  Serious: No
  Sender: FDA-Public Use
  Company Number: US-ABBOTT-12P-163-0888827-00

PATIENT
  Age: 62 Year
  Sex: Female

DRUGS (8)
  1. FOLIC ACID [Concomitant]
     Indication: PRODUCT USED FOR UNKNOWN INDICATION
  2. LEUCOVORIN CALCIUM [Concomitant]
     Indication: PRODUCT USED FOR UNKNOWN INDICATION
  3. PRILOSEC [Concomitant]
     Indication: ADVERSE DRUG REACTION
  4. EVISTA HRT [Concomitant]
     Indication: PRODUCT USED FOR UNKNOWN INDICATION
  5. HUMIRA [Suspect]
     Indication: RHEUMATOID ARTHRITIS
     Dates: start: 20111216
  6. FISH OIL [Concomitant]
     Indication: PRODUCT USED FOR UNKNOWN INDICATION
  7. METHOTREXATE [Concomitant]
     Indication: PRODUCT USED FOR UNKNOWN INDICATION
  8. COQ10 [Concomitant]
     Indication: PRODUCT USED FOR UNKNOWN INDICATION

REACTIONS (2)
  - FEELING ABNORMAL [None]
  - ULCER [None]
